FAERS Safety Report 9198400 (Version 1)
Quarter: 2013Q1

REPORT INFORMATION
  Report Type: Spontaneous
  Country: US (occurrence: None)
  Receive Date: 20130327
  Receipt Date: 20130327
  Transmission Date: 20140127
  Serious: Yes (Hospitalization, Other)
  Sender: FDA-Public Use
  Company Number: None

PATIENT
  Age: 54 Year
  Sex: Male
  Weight: 97.52 kg

DRUGS (1)
  1. EPINEPHRINE [Suspect]
     Dates: start: 20120731

REACTIONS (4)
  - Cardiac valve vegetation [None]
  - Product contamination [None]
  - Bacteraemia [None]
  - Feeling abnormal [None]
